FAERS Safety Report 24607669 (Version 1)
Quarter: 2024Q4

REPORT INFORMATION
  Report Type: Spontaneous
  Country: SE (occurrence: SE)
  Receive Date: 20241112
  Receipt Date: 20241112
  Transmission Date: 20250115
  Serious: Yes (Other)
  Sender: RANBAXY
  Company Number: SE-SUN PHARMACEUTICAL INDUSTRIES LTD-2024RR-478191

PATIENT
  Age: 28 Year
  Sex: Female

DRUGS (1)
  1. SERTRALINE [Suspect]
     Active Substance: SERTRALINE HYDROCHLORIDE
     Indication: Depression
     Dosage: UNK
     Route: 065
     Dates: start: 2012, end: 2023

REACTIONS (4)
  - Nausea [Recovered/Resolved]
  - Abnormal loss of weight [Unknown]
  - Withdrawal syndrome [Recovered/Resolved]
  - Emotional distress [Recovered/Resolved]

NARRATIVE: CASE EVENT DATE: 20230101
